FAERS Safety Report 6701854-6 (Version None)
Quarter: 2010Q2

REPORT INFORMATION
  Report Type: 
  Country: None (occurrence: None)
  Receive Date: 20100429
  Receipt Date: 20100422
  Transmission Date: 20101027
  Serious: Yes (Other)
  Sender: FDA-Public Use
  Company Number: JP-BRISTOL-MYERS SQUIBB COMPANY-14864201

PATIENT
  Age: 71 Year
  Sex: Female
  Weight: 57 kg

DRUGS (19)
  1. ERBITUX [Suspect]
     Indication: COLON CANCER
     Dosage: 390 MG;06OC09-20OCT09 380MG:27OCT09-27OCT09 375MG:5JAN2010
     Route: 042
     Dates: start: 20090929, end: 20090929
  2. IRINOTECAN HCL [Concomitant]
     Indication: COLON CANCER
     Dosage: 1 DOSAGE FORM=230(UNITS NOT SPECIFIED)
     Route: 042
     Dates: start: 20090929, end: 20091020
  3. FLUOROURACIL [Concomitant]
     Indication: COLON CANCER
     Dosage: 1 DOSAGE FORM=IV BOLUS:625MG +IV:3700MG
     Route: 042
     Dates: start: 20090929, end: 20090929
  4. LEUCOVORIN CALCIUM [Concomitant]
     Indication: COLON CANCER
     Route: 042
     Dates: start: 20090929, end: 20090929
  5. POLARAMINE [Concomitant]
     Indication: PREMEDICATION
     Route: 042
     Dates: start: 20090929, end: 20091027
  6. DECADRON [Concomitant]
     Indication: PREMEDICATION
     Route: 042
     Dates: start: 20090929, end: 20091027
  7. KYTRIL [Concomitant]
     Indication: ANTIEMETIC SUPPORTIVE CARE
     Dates: start: 20090929
  8. OXYCONTIN [Concomitant]
     Indication: PAIN
     Dosage: TABLET
     Route: 048
     Dates: start: 20090929
  9. OXINORM [Concomitant]
     Indication: PAIN
     Dosage: GRANULES
     Route: 048
     Dates: start: 20090929
  10. LOXONIN [Concomitant]
     Indication: PAIN
     Dosage: TABLET
     Route: 048
     Dates: start: 20090929
  11. CYTOTEC [Concomitant]
     Indication: PROPHYLAXIS
     Dosage: TABLET
     Route: 048
     Dates: start: 20090929
  12. GABAPEN [Concomitant]
     Indication: NEUROPATHY PERIPHERAL
     Dosage: TABLET
     Route: 048
     Dates: start: 20090910
  13. WARFARIN SODIUM [Concomitant]
     Indication: DEEP VEIN THROMBOSIS
     Dosage: TABLET
     Route: 048
     Dates: start: 20090818
  14. VITAMEDIN [Concomitant]
     Dosage: CAPSULE
     Route: 048
     Dates: start: 20090113
  15. PROCHLORPERAZINE [Concomitant]
     Dosage: TABLET
     Route: 048
     Dates: start: 20090113
  16. MAGMITT [Concomitant]
     Dosage: TABLET
     Route: 048
     Dates: start: 20090113
  17. DEPAS [Concomitant]
     Dosage: TABLET
     Route: 048
     Dates: start: 20090113
  18. PARIET [Concomitant]
     Indication: PROPHYLAXIS
     Route: 048
     Dates: start: 20090929
  19. RADIOTHERAPY [Concomitant]
     Dates: start: 20091001, end: 20091106

REACTIONS (2)
  - STOMATITIS [None]
  - VENOUS THROMBOSIS [None]
